FAERS Safety Report 8384812-8 (Version None)
Quarter: 2012Q2

REPORT INFORMATION
  Report Type: 
  Country: None (occurrence: None)
  Receive Date: 20120524
  Receipt Date: 20120518
  Transmission Date: 20120825
  Serious: Yes (Hospitalization, Other)
  Sender: FDA-Public Use
  Company Number: US-ABBOTT-12P-163-0936757-00

PATIENT
  Sex: Female
  Weight: 60.836 kg

DRUGS (17)
  1. HUMIRA [Suspect]
     Indication: RHEUMATOID ARTHRITIS
     Dates: start: 20051006, end: 20060601
  2. MELALEUCA CELLWISE (NEW) [Concomitant]
     Indication: PRODUCT USED FOR UNKNOWN INDICATION
     Dosage: 1 PILL ONCE DAILY
     Route: 048
     Dates: start: 20050910, end: 20051007
  3. ALBUTEROL [Concomitant]
     Indication: ASTHMA
     Route: 055
     Dates: start: 20051226, end: 20060106
  4. ALBUTEROL [Concomitant]
  5. PULMICORT [Concomitant]
     Indication: ASTHMA
     Route: 055
     Dates: start: 20060411, end: 20060601
  6. MELALEUCA VITALITY MINERAL W/1000 MG CA [Concomitant]
     Indication: PRODUCT USED FOR UNKNOWN INDICATION
     Dosage: 2 PILLS ONCE DAILY
     Route: 048
     Dates: start: 20050910, end: 20051103
  7. CAFFEINE [Concomitant]
     Dosage: SODA, 1.5 SERVING 3 TIMES DAILY
     Route: 048
     Dates: start: 20051011, end: 20060601
  8. ADVAIR DISKUS 100/50 [Concomitant]
     Indication: ASTHMA
     Route: 055
     Dates: start: 20060106, end: 20060410
  9. PREDNISONE TAB [Concomitant]
     Indication: RHEUMATOID ARTHRITIS
     Route: 048
     Dates: start: 20060508, end: 20060508
  10. HEPARIN SODIUM 1,000 UNITS IN SODIUM CHLORIDE 0.9% [Concomitant]
     Indication: PRODUCT USED FOR UNKNOWN INDICATION
     Dosage: WAS USING EVERY 4 WEEKS (IU)
     Route: 042
     Dates: start: 20050910, end: 20060428
  11. MELALEUCA FLORIFY [Concomitant]
     Indication: PRODUCT USED FOR UNKNOWN INDICATION
     Dosage: 1 PILL ONCE DAILY
     Route: 048
     Dates: start: 20050910, end: 20051007
  12. MULTI-VITAMINS [Concomitant]
     Indication: PRODUCT USED FOR UNKNOWN INDICATION
     Dosage: 1 PILL DAILY
     Route: 048
     Dates: start: 20051103, end: 20060601
  13. PREDNISONE TAB [Concomitant]
     Route: 048
     Dates: start: 20060510, end: 20060510
  14. PREDNISONE TAB [Concomitant]
     Route: 048
     Dates: start: 20060509, end: 20060509
  15. SALINE NASAL SPRAY [Concomitant]
     Indication: ASTHMA
     Dosage: INTRANASAL MIST, DAILY
     Route: 045
     Dates: start: 20050910, end: 20060126
  16. MULTI-VITAMINS [Concomitant]
     Indication: PRODUCT USED FOR UNKNOWN INDICATION
     Dosage: 2 PILLS ONCE DAILY
     Route: 048
     Dates: start: 20050910, end: 20051103
  17. CAFFEINE [Concomitant]
     Indication: PRODUCT USED FOR UNKNOWN INDICATION
     Dosage: SODA, 1 SERVING 3 TIMES DAILY
     Route: 048
     Dates: start: 20050910, end: 20051007

REACTIONS (6)
  - PREMATURE LABOUR [None]
  - ASTHMA [None]
  - CERVICAL DYSPLASIA [None]
  - NASOPHARYNGITIS [None]
  - RHEUMATOID ARTHRITIS [None]
  - HEADACHE [None]
